FAERS Safety Report 24293244 (Version 1)
Quarter: 2024Q3

REPORT INFORMATION
  Report Type: Spontaneous
  Country: US (occurrence: None)
  Receive Date: 20240906
  Receipt Date: 20240906
  Transmission Date: 20241016
  Serious: No
  Sender: DOMPE FARMACEUTICI
  Company Number: US-FARMAPROD-202308-202312-3668

PATIENT
  Sex: Male

DRUGS (3)
  1. OXERVATE [Suspect]
     Active Substance: CENEGERMIN-BKBJ
     Indication: Neurotrophic keratopathy
     Route: 047
     Dates: start: 20231117
  2. LUBRICANT EYE (POLYETHYLENE GLYCOL 400\PROPYLENE GLYCOL) [Concomitant]
     Active Substance: POLYETHYLENE GLYCOL 400\PROPYLENE GLYCOL
     Dosage: 0.3 %-0.4%
  3. ERYTHROMYCIN [Concomitant]
     Active Substance: ERYTHROMYCIN

REACTIONS (5)
  - Device use issue [Unknown]
  - Dry eye [Unknown]
  - Vision blurred [Unknown]
  - Eyelid irritation [Unknown]
  - Accidental overdose [Unknown]
